FAERS Safety Report 8177746-5 (Version None)
Quarter: 2012Q1

REPORT INFORMATION
  Report Type: 
  Country: None (occurrence: None)
  Receive Date: 20120301
  Receipt Date: 20120223
  Transmission Date: 20120608
  Serious: Yes (Hospitalization)
  Sender: FDA-Public Use
  Company Number: US-JNJFOC-20120212515

PATIENT
  Sex: Female
  Weight: 62.6 kg

DRUGS (4)
  1. REMICADE [Suspect]
     Indication: COLITIS ULCERATIVE
     Route: 042
     Dates: start: 20111206
  2. REMICADE [Suspect]
     Route: 042
     Dates: start: 20110701
  3. ACTONEL [Concomitant]
     Indication: BONE DENSITY ABNORMAL
     Route: 065
     Dates: start: 20100101
  4. TOPROL-XL [Concomitant]
     Indication: BLOOD PRESSURE
     Route: 065
     Dates: start: 20091101

REACTIONS (7)
  - PNEUMONIA [None]
  - PLEURISY [None]
  - ARTHRALGIA [None]
  - ADVERSE DRUG REACTION [None]
  - PYREXIA [None]
  - HEADACHE [None]
  - SINUSITIS [None]
